FAERS Safety Report 10736256 (Version 1)
Quarter: 2015Q1

REPORT INFORMATION
  Report Type: Spontaneous
  Country: CH (occurrence: CH)
  Receive Date: 20150126
  Receipt Date: 20150126
  Transmission Date: 20150721
  Serious: Yes (Hospitalization)
  Sender: FDA-Public Use
  Company Number: CH-TEVA-534599ISR

PATIENT
  Age: 74 Year
  Sex: Male
  Weight: 69.3 kg

DRUGS (13)
  1. METHOTREXATE [Suspect]
     Active Substance: METHOTREXATE
     Route: 058
     Dates: end: 20141122
  2. TOREM 5 TABLETTEN [Suspect]
     Active Substance: TORSEMIDE
     Dosage: 5 MILLIGRAM DAILY; DRUG START DATE WAS UNKNOWN, THERAPY HAD BEEN ONGOING FOR A WHILE
     Route: 048
     Dates: end: 20141122
  3. SIMVASTIN STREULI 20 MG [Concomitant]
     Dosage: 20 MILLIGRAM DAILY; CONTINUING
     Route: 048
  4. CONCOR 5 MG [Concomitant]
     Dosage: 10 MILLIGRAM DAILY;
     Route: 048
  5. SERESTA 15 MG [Concomitant]
     Dosage: 30 MILLIGRAM DAILY; CONTINUING
     Route: 048
  6. CIPROXIN 750 LACKTABLETTEN [Suspect]
     Active Substance: CIPROFLOXACIN HYDROCHLORIDE
     Route: 048
     Dates: start: 20141110, end: 20141122
  7. METFIN 850 MG [Concomitant]
     Dosage: 1700 MILLIGRAM DAILY;
     Route: 048
  8. CALCORT 6 MG [Concomitant]
     Dosage: 6 MILLIGRAM DAILY; SUBSTITUTED WITH PREDNISONE
     Route: 048
  9. ENATEC 10 TABLETTEN [Suspect]
     Active Substance: ENALAPRIL MALEATE
     Dosage: 20 MILLIGRAM DAILY; DRUG START DATE WAS UNKNOWN, THERAPY HAD BEEN ONGOING FOR A WHILE
     Route: 048
     Dates: end: 20141122
  10. AMARYL 2 MG [Concomitant]
     Dosage: 2 MILLIGRAM DAILY;
     Route: 048
  11. PANTOZOL [Concomitant]
     Active Substance: PANTOPRAZOLE SODIUM
     Dosage: 40 MILLIGRAM DAILY; CONTINUING
     Route: 048
  12. SINTROM 1 MG [Concomitant]
     Dosage: CONTINUING, ACCORDING TO SCHEME
     Route: 048
  13. METOLAZON 5 MG TABLET [Suspect]
     Active Substance: METOLAZONE
     Dosage: .7143 MILLIGRAM DAILY; DRUG START DATE WAS UNKNOWN, THERAPY HAD BEEN ONGOING FOR A WHILE
     Route: 048
     Dates: end: 20141122

REACTIONS (2)
  - Acute kidney injury [Recovering/Resolving]
  - Asthenia [Unknown]

NARRATIVE: CASE EVENT DATE: 20141122
